FAERS Safety Report 21712276 (Version 9)
Quarter: 2023Q2

REPORT INFORMATION
  Report Type: Spontaneous
  Country: US (occurrence: US)
  Receive Date: 20221212
  Receipt Date: 20230602
  Transmission Date: 20230721
  Serious: Yes (Hospitalization, Other)
  Sender: FDA-Public Use
  Company Number: US-Accord-289928

PATIENT
  Age: 71 Year
  Sex: Male
  Weight: 106.6 kg

DRUGS (21)
  1. CARBOPLATIN [Suspect]
     Active Substance: CARBOPLATIN
     Indication: Squamous cell carcinoma of head and neck
     Dosage: DOSE: 5 AUC, 1Q3W
     Route: 042
     Dates: start: 20220902, end: 20220923
  2. FLUOROURACIL [Suspect]
     Active Substance: FLUOROURACIL
     Indication: Squamous cell carcinoma of head and neck
     Dosage: (ON DAY 1,2,3,4 OF EVERY 3 WEEKS CYCLE)
     Route: 042
     Dates: start: 20220902, end: 20220906
  3. PEMBROLIZUMAB [Suspect]
     Active Substance: PEMBROLIZUMAB
     Indication: Squamous cell carcinoma of head and neck
     Route: 042
     Dates: start: 20220902, end: 20221104
  4. SODIUM CHLORIDE [Concomitant]
     Active Substance: SODIUM CHLORIDE
     Dosage: STRENGTH: 0.9 PERCENT
     Dates: start: 20221025, end: 20221025
  5. DEXAMETHASONE [Concomitant]
     Active Substance: DEXAMETHASONE
     Dates: start: 20220902
  6. ASPIRIN [Concomitant]
     Active Substance: ASPIRIN
     Dates: start: 20100101
  7. LEVOTHYROXINE [Concomitant]
     Active Substance: LEVOTHYROXINE
     Dates: start: 20160101
  8. VITAMIN B12 [Concomitant]
     Active Substance: CYANOCOBALAMIN
     Dates: start: 20000101
  9. LISINOPRIL [Concomitant]
     Active Substance: LISINOPRIL
     Dates: start: 20160101
  10. METFORMIN [Concomitant]
     Active Substance: METFORMIN HYDROCHLORIDE
     Dates: start: 20160101
  11. CLOTRIMAZOLE [Concomitant]
     Active Substance: CLOTRIMAZOLE
     Dates: start: 20220909
  12. NYSTATIN [Concomitant]
     Active Substance: NYSTATIN
     Route: 065
     Dates: start: 20220909
  13. IMODIUM [Concomitant]
     Active Substance: LOPERAMIDE HYDROCHLORIDE
     Dates: start: 20220916
  14. ALLOPURINOL [Concomitant]
     Active Substance: ALLOPURINOL
     Dates: start: 20220921
  15. SODIUM CHLORIDE [Concomitant]
     Active Substance: SODIUM CHLORIDE
     Dates: start: 20220930
  16. NEULASTA [Concomitant]
     Active Substance: PEGFILGRASTIM
     Dates: start: 20220927, end: 20221108
  17. AFRIN [Concomitant]
     Active Substance: OXYMETAZOLINE
  18. CARBOPLATIN [Suspect]
     Active Substance: CARBOPLATIN
     Indication: Squamous cell carcinoma of head and neck
     Dosage: DOSE: 4 AUC, 1Q3W
     Route: 042
     Dates: start: 20221014, end: 20221104
  19. FLUOROURACIL [Suspect]
     Active Substance: FLUOROURACIL
     Indication: Squamous cell carcinoma of head and neck
     Dosage: (ON DAY 1,2,3,4 OF EVERY 3 WEEKS CYCLE)
     Route: 042
     Dates: start: 20220923, end: 20220927
  20. FLUOROURACIL [Suspect]
     Active Substance: FLUOROURACIL
     Indication: Squamous cell carcinoma of head and neck
     Dosage: (ON DAY 1,2,3,4 OF EVERY 3 WEEKS CYCLE)
     Route: 042
     Dates: start: 20221014, end: 20221018
  21. FLUOROURACIL [Suspect]
     Active Substance: FLUOROURACIL
     Indication: Squamous cell carcinoma of head and neck
     Dosage: (ON DAY 1,2,3,4 OF EVERY 3 WEEKS CYCLE)
     Route: 042
     Dates: start: 20221104, end: 20221108

REACTIONS (5)
  - Hypersensitivity [Recovered/Resolved]
  - Supraventricular tachycardia [Recovered/Resolved]
  - Platelet count decreased [Recovered/Resolved]
  - Dyspnoea [Unknown]
  - Tachycardia [Unknown]

NARRATIVE: CASE EVENT DATE: 20221114
